FAERS Safety Report 5193877-6 (Version None)
Quarter: 2006Q4

REPORT INFORMATION
  Report Type: 
  Country: None (occurrence: None)
  Receive Date: 20061222
  Receipt Date: 20061208
  Transmission Date: 20070319
  Serious: Yes (Death)
  Sender: FDA-Public Use
  Company Number: 8020633

PATIENT
  Age: 37 Year
  Sex: Male

DRUGS (8)
  1. LORTAB [Suspect]
     Indication: BREAKTHROUGH PAIN
     Dosage: 10 MG /D PO
     Route: 048
     Dates: start: 20040805, end: 20041101
  2. KADIAN [Suspect]
     Indication: BACK PAIN
     Dosage: 30  MG 2/D PO
     Route: 048
     Dates: start: 20040805, end: 20040822
  3. KADIAN [Suspect]
     Indication: BACK PAIN
     Dosage: 60 MG 2/D PO
     Route: 048
     Dates: start: 20040823, end: 20040921
  4. KADIAN [Suspect]
     Indication: BACK PAIN
     Dosage: 100 MG 2/D PO
     Route: 048
     Dates: start: 20040922, end: 20041101
  5. VALIUM [Concomitant]
  6. LIBRIUM [Concomitant]
  7. TYLENOL [Concomitant]
  8. ZYRTEC [Concomitant]

REACTIONS (11)
  - ACCIDENTAL DEATH [None]
  - COMPLETED SUICIDE [None]
  - CONSTIPATION [None]
  - DEPRESSION [None]
  - DRUG INTOLERANCE [None]
  - EMOTIONAL DISTRESS [None]
  - INTENTIONAL OVERDOSE [None]
  - LOSS OF CONSCIOUSNESS [None]
  - MUSCULOSKELETAL STIFFNESS [None]
  - RESPIRATORY DEPRESSION [None]
  - SELF-MEDICATION [None]
